FAERS Safety Report 4360990-2 (Version None)
Quarter: 2004Q2

REPORT INFORMATION
  Report Type: 
  Country: None (occurrence: None)
  Receive Date: 20040517
  Receipt Date: 20040302
  Transmission Date: 20050107
  Serious: Yes (Life-Threatening)
  Sender: FDA-Public Use
  Company Number: 2004AP00832

PATIENT
  Age: 69 Year
  Sex: Male

DRUGS (8)
  1. IRESSA [Suspect]
     Indication: NON-SMALL CELL LUNG CANCER RECURRENT
     Dosage: 250 MG DAILY PO
     Route: 048
     Dates: start: 20030922, end: 20031020
  2. IRESSA [Suspect]
     Indication: SQUAMOUS CELL CARCINOMA
     Dosage: 250 MG DAILY PO
     Route: 048
     Dates: start: 20030922, end: 20031020
  3. BISOLVON [Concomitant]
  4. KELNAC [Concomitant]
  5. TAKEPRON [Concomitant]
  6. CODEINE PHOSPHATE [Concomitant]
  7. KETOPROFEN [Concomitant]
  8. RADIATION THERAPY [Concomitant]

REACTIONS (2)
  - PYREXIA [None]
  - STATUS ASTHMATICUS [None]
